FAERS Safety Report 6292989-3 (Version None)
Quarter: 2009Q3

REPORT INFORMATION
  Report Type: 
  Country: None (occurrence: None)
  Receive Date: 20090731
  Receipt Date: 20090728
  Transmission Date: 20100115
  Serious: Yes (Disabling)
  Sender: FDA-Public Use
  Company Number: DE-MERCK-0907DEU00060

PATIENT
  Age: 58 Year
  Sex: Female
  Weight: 57 kg

DRUGS (4)
  1. CLINORIL [Suspect]
     Indication: ADENOMATOUS POLYPOSIS COLI
     Route: 048
  2. CLINORIL [Suspect]
     Indication: DESMOID TUMOUR
     Route: 048
  3. TAMOXIFEN CITRATE [Suspect]
     Indication: ADENOMATOUS POLYPOSIS COLI
     Route: 048
     Dates: end: 20080101
  4. TAMOXIFEN CITRATE [Suspect]
     Indication: DESMOID TUMOUR
     Route: 048
     Dates: end: 20080101

REACTIONS (1)
  - MACULAR OEDEMA [None]
